FAERS Safety Report 12155247 (Version 1)
Quarter: 2016Q1

REPORT INFORMATION
  Report Type: Report from Study
  Country: US (occurrence: US)
  Receive Date: 20160307
  Receipt Date: 20160307
  Transmission Date: 20160526
  Serious: No
  Sender: FDA-Public Use
  Company Number: US-AMGEN-USASL2015130229

PATIENT
  Age: 26 Year
  Sex: Female

DRUGS (1)
  1. BLINCYTO [Suspect]
     Active Substance: BLINATUMOMAB
     Indication: ACUTE LYMPHOCYTIC LEUKAEMIA
     Dosage: 32.5 MUG, UNK
     Route: 065
     Dates: start: 20151020, end: 20151115

REACTIONS (2)
  - Incorrect dose administered [Unknown]
  - Drug effect decreased [Unknown]
